FAERS Safety Report 16305328 (Version 1)
Quarter: 2019Q2

REPORT INFORMATION
  Report Type: Spontaneous
  Country: US (occurrence: US)
  Receive Date: 20190510
  Receipt Date: 20190510
  Transmission Date: 20190711
  Serious: Yes (Life-Threatening, Hospitalization, Disabling)
  Sender: FDA-Public Use
  Company Number: None

PATIENT
  Age: 15 Year
  Sex: Female
  Weight: 67.5 kg

DRUGS (5)
  1. LAMICTAL [Concomitant]
     Active Substance: LAMOTRIGINE
  2. MELATONIN [Concomitant]
     Active Substance: MELATONIN
  3. MONTELUKAST SODIUM 10 MG TAB MACL [Suspect]
     Active Substance: MONTELUKAST SODIUM
     Indication: ALLERGY TO ANIMAL
     Dosage: ?          QUANTITY:30 TABLET(S);?
     Route: 048
     Dates: start: 20180321, end: 20190501
  4. WELLBUTRIN 100 MG 2 [Concomitant]
  5. CBD OIL, [Concomitant]

REACTIONS (10)
  - Disturbance in attention [None]
  - Panic attack [None]
  - Suicidal ideation [None]
  - Drug ineffective [None]
  - Major depression [None]
  - Fatigue [None]
  - Depression [None]
  - Pain [None]
  - Anxiety [None]
  - Generalised anxiety disorder [None]

NARRATIVE: CASE EVENT DATE: 20190311
